FAERS Safety Report 18479887 (Version 2)
Quarter: 2020Q4

REPORT INFORMATION
  Report Type: Spontaneous
  Country: US (occurrence: US)
  Receive Date: 20201109
  Receipt Date: 20201116
  Transmission Date: 20210114
  Serious: No
  Sender: FDA-Public Use
  Company Number: US-PFIZER INC-2020057442

PATIENT
  Age: 85 Year
  Sex: Female

DRUGS (2)
  1. LYRICA [Suspect]
     Active Substance: PREGABALIN
     Dosage: 200 MG, 1X/DAY (SIG: TAKE 1 CAPSULE EVERYDAY BY ORAL ROUTE FOR 90 DAYS)
     Route: 048
  2. LYRICA [Suspect]
     Active Substance: PREGABALIN
     Dosage: 150 MG, 1X/DAY (SIG: TAKE 1 CAPSULE EVERYDAY BY ORAL ROUTE FOR 90 DAYS)
     Route: 048

REACTIONS (1)
  - Tremor [Unknown]
